FAERS Safety Report 7139465-3 (Version None)
Quarter: 2010Q4

REPORT INFORMATION
  Report Type: 
  Country: None (occurrence: None)
  Receive Date: 20101206
  Receipt Date: 20101130
  Transmission Date: 20110411
  Serious: Yes (Other)
  Sender: FDA-Public Use
  Company Number: BR-PFIZER INC-2010161152

PATIENT
  Sex: Female

DRUGS (2)
  1. FRONTAL XR [Suspect]
     Indication: PANIC DISORDER
     Dosage: UNK
     Route: 048
     Dates: start: 20101127
  2. ALPRAZOLAM [Suspect]
     Indication: PANIC DISORDER
     Dosage: 0.25MG  AM AND 0.5MG PM
     Route: 048
     Dates: start: 20100501

REACTIONS (2)
  - DYSPNOEA [None]
  - WRONG DRUG ADMINISTERED [None]
